FAERS Safety Report 18097767 (Version 1)
Quarter: 2020Q3

REPORT INFORMATION
  Report Type: Spontaneous
  Country: US (occurrence: US)
  Receive Date: 20200731
  Receipt Date: 20200731
  Transmission Date: 20201103
  Serious: Yes (Hospitalization)
  Sender: FDA-Public Use
  Company Number: None

PATIENT
  Age: 80 Year
  Sex: Female

DRUGS (9)
  1. AMLODIPINE [Concomitant]
     Active Substance: AMLODIPINE BESYLATE
     Dates: start: 20200708
  2. COLCHICINE. [Concomitant]
     Active Substance: COLCHICINE
     Dates: start: 20200601
  3. PRAVASTATIN. [Concomitant]
     Active Substance: PRAVASTATIN
     Dates: start: 20200110
  4. ELIQUIS [Concomitant]
     Active Substance: APIXABAN
     Dates: start: 20190815
  5. PANTOPRAZOLE [Concomitant]
     Active Substance: PANTOPRAZOLE
     Dates: start: 20200506
  6. LOSARTAN. [Concomitant]
     Active Substance: LOSARTAN
     Dates: start: 20200423
  7. TIKOSYN [Suspect]
     Active Substance: DOFETILIDE
     Indication: RESPIRATORY DISORDER
     Route: 048
     Dates: start: 20190711
  8. METOPROLOL. [Concomitant]
     Active Substance: METOPROLOL
     Dates: start: 20200414
  9. PREDNISONE. [Concomitant]
     Active Substance: PREDNISONE
     Dates: start: 20200409

REACTIONS (1)
  - Cardiac pacemaker insertion [None]

NARRATIVE: CASE EVENT DATE: 20200610
